FAERS Safety Report 18495677 (Version 1)
Quarter: 2020Q4

REPORT INFORMATION
  Report Type: Spontaneous
  Country: AR (occurrence: AR)
  Receive Date: 20201112
  Receipt Date: 20201112
  Transmission Date: 20210114
  Serious: Yes (Other)
  Sender: FDA-Public Use
  Company Number: AR-PFIZER INC-2020443348

PATIENT
  Age: 77 Year
  Sex: Male

DRUGS (1)
  1. IBRANCE [Suspect]
     Active Substance: PALBOCICLIB
     Indication: BREAST CANCER METASTATIC
     Dosage: 125 MG, CYCLIC (DAILY 3X1 SCHEME)
     Dates: start: 20200727, end: 20200914

REACTIONS (4)
  - Arrhythmia [Unknown]
  - Weight decreased [Unknown]
  - Eating disorder [Unknown]
  - Food refusal [Unknown]

NARRATIVE: CASE EVENT DATE: 20200914
